FAERS Safety Report 4294336-5 (Version None)
Quarter: 2004Q1

REPORT INFORMATION
  Report Type: 
  Country: None (occurrence: None)
  Receive Date: 20040211
  Receipt Date: 20030814
  Transmission Date: 20041129
  Serious: Yes (Other)
  Sender: FDA-Public Use
  Company Number: US-GLAXOSMITHKLINE-A0421212A

PATIENT
  Age: 8 Year
  Sex: Male

DRUGS (4)
  1. LAMICTAL [Suspect]
     Dosage: 50MG PER DAY
     Route: 048
     Dates: start: 20030723
  2. REMERON [Concomitant]
  3. CONCERTA [Concomitant]
  4. STRATTERA [Concomitant]

REACTIONS (2)
  - EOSINOPHILIA [None]
  - NEUTROPENIA [None]
